FAERS Safety Report 9984751 (Version 1)
Quarter: 2014Q1

REPORT INFORMATION
  Report Type: Report from Study
  Country: US (occurrence: US)
  Receive Date: 20140304
  Receipt Date: 20140304
  Transmission Date: 20141002
  Serious: No
  Sender: FDA-Public Use
  Company Number: US-ABBVIE-13P-163-1076658-00

PATIENT
  Sex: Female

DRUGS (2)
  1. HUMIRA [Suspect]
     Indication: COLITIS ULCERATIVE
     Dates: start: 2012, end: 2012
  2. HUMIRA [Suspect]
     Dates: start: 2012, end: 2012

REACTIONS (7)
  - Gingival bleeding [Recovered/Resolved]
  - Cough [Recovered/Resolved]
  - Psoriasis [Recovered/Resolved]
  - Influenza like illness [Recovered/Resolved]
  - Muscular weakness [Recovered/Resolved]
  - Muscular weakness [Recovered/Resolved]
  - Pain [Not Recovered/Not Resolved]
